FAERS Safety Report 10333662 (Version 1)
Quarter: 2014Q3

REPORT INFORMATION
  Report Type: Spontaneous
  Country: JP (occurrence: JP)
  Receive Date: 20140723
  Receipt Date: 20140723
  Transmission Date: 20150326
  Serious: Yes (Other)
  Sender: FDA-Public Use
  Company Number: JP-BEH-2014043880

PATIENT
  Age: 30 Year
  Sex: Female

DRUGS (6)
  1. HIGH-DOSE INTRAVENOUS IMMUNOGLOBULIN [Suspect]
     Active Substance: HUMAN IMMUNOGLOBULIN G
     Indication: FOETAL GROWTH RESTRICTION
     Dosage: HIGH-DOSE GIVEN TWICE IN TOTAL FROM 18 WEEKS
     Route: 042
  2. DANAPAROID SODIUM [Concomitant]
     Active Substance: DANAPAROID SODIUM
  3. HIGH-DOSE INTRAVENOUS IMMUNOGLOBULIN [Suspect]
     Active Substance: HUMAN IMMUNOGLOBULIN G
     Indication: OLIGOHYDRAMNIOS
     Dosage: HIGH-DOSE GIVEN TWICE IN TOTAL FROM 18 WEEKS
     Route: 042
  4. PSL [Concomitant]
  5. ASPIRIN. [Concomitant]
     Active Substance: ASPIRIN
  6. AMLODIPINE [Concomitant]
     Active Substance: AMLODIPINE BESYLATE
     Indication: BLOOD PRESSURE INCREASED

REACTIONS (2)
  - Drug ineffective for unapproved indication [Not Recovered/Not Resolved]
  - Exposure during pregnancy [Unknown]
